FAERS Safety Report 7321308-6 (Version None)
Quarter: 2011Q1

REPORT INFORMATION
  Report Type: 
  Country: None (occurrence: None)
  Receive Date: 20110228
  Receipt Date: 20100217
  Transmission Date: 20110831
  Serious: Yes (Other)
  Sender: FDA-Public Use
  Company Number: US-PFIZER INC-2010001709

PATIENT
  Sex: Male
  Weight: 53.515 kg

DRUGS (9)
  1. LOVAZA [Concomitant]
     Dates: end: 20091001
  2. METHYLFOLATE [Concomitant]
     Dosage: 7.5 MG, UNK
  3. LEXAPRO [Concomitant]
  4. MULTI-VITAMINS [Concomitant]
     Dates: end: 20091001
  5. GEODON [Suspect]
     Indication: TIC
  6. TENEX [Concomitant]
     Dosage: FREQUENCY: 2X/DAY,
  7. RISPERDAL [Concomitant]
     Dosage: 0.25 MG, UNK
     Dates: end: 20091004
  8. GEODON [Suspect]
     Indication: OBSESSIVE-COMPULSIVE DISORDER
     Dosage: 20 MG, 2X/DAY
     Route: 048
     Dates: start: 20090904
  9. GEODON [Suspect]
     Indication: BIPOLAR DISORDER
     Dosage: UNK
     Route: 048
     Dates: start: 20091002, end: 20100128

REACTIONS (5)
  - BLOOD CREATININE INCREASED [None]
  - HAEMATEMESIS [None]
  - VOMITING [None]
  - BLOOD PROLACTIN DECREASED [None]
  - BLOOD TRIGLYCERIDES INCREASED [None]
